FAERS Safety Report 12473842 (Version 1)
Quarter: 2016Q2

REPORT INFORMATION
  Report Type: Not Available
  Country: None (occurrence: US)
  Receive Date: 20160616
  Receipt Date: 20160616
  Transmission Date: 20160815
  Serious: No
  Sender: FDA-Public Use
  Company Number: US-AKORN-32348

PATIENT
  Sex: Female

DRUGS (1)
  1. IC-GREEN [Suspect]
     Active Substance: INDOCYANINE GREEN

REACTIONS (3)
  - Laceration [Unknown]
  - Product container issue [None]
  - Product package associated injury [None]
